APPROVED DRUG PRODUCT: DAPSONE
Active Ingredient: DAPSONE
Strength: 100MG
Dosage Form/Route: TABLET;ORAL
Application: A204380 | Product #002 | TE Code: AB
Applicant: ACTAVIS LLC
Approved: Mar 23, 2017 | RLD: No | RS: No | Type: RX